FAERS Safety Report 7380678-3 (Version None)
Quarter: 2011Q1

REPORT INFORMATION
  Report Type: 
  Country: None (occurrence: None)
  Receive Date: 20110325
  Receipt Date: 20110325
  Transmission Date: 20110831
  Serious: Yes (Hospitalization)
  Sender: FDA-Public Use
  Company Number: None

PATIENT
  Age: 73 Year
  Sex: Female
  Weight: 163 kg

DRUGS (6)
  1. VIT D3 [Concomitant]
  2. FISH OIL [Concomitant]
  3. M.V.I. [Concomitant]
  4. VIT C [Concomitant]
  5. ASPIRIN [Suspect]
     Indication: ARTHRITIS
     Dosage: 325 DAILY PO  CHRONIC
     Route: 048
  6. ALEVE [Suspect]
     Indication: ARTHRITIS
     Dosage: 220MG 2 TABLETS BID PO  CHRONIC
     Route: 048

REACTIONS (2)
  - MELAENA [None]
  - GASTRIC ULCER [None]
